FAERS Safety Report 5823250-6 (Version None)
Quarter: 2008Q3

REPORT INFORMATION
  Report Type: 
  Country: None (occurrence: None)
  Receive Date: 20080725
  Receipt Date: 20080718
  Transmission Date: 20090109
  Serious: Yes (Other)
  Sender: FDA-Public Use
  Company Number: HQWYE187711AUG04

PATIENT
  Sex: Female
  Weight: 109.41 kg

DRUGS (2)
  1. PREMARIN [Suspect]
     Indication: OSTEOPOROSIS
  2. PROVERA [Suspect]

REACTIONS (12)
  - ALCOHOL USE [None]
  - ANXIETY [None]
  - ASTHENIA [None]
  - BREAST CALCIFICATIONS [None]
  - BREAST CANCER METASTATIC [None]
  - CELLULITIS [None]
  - DIZZINESS [None]
  - FALL [None]
  - LYMPHOEDEMA [None]
  - METASTASES TO LYMPH NODES [None]
  - OESTROGEN RECEPTOR ASSAY POSITIVE [None]
  - PROGESTERONE RECEPTOR ASSAY POSITIVE [None]
